FAERS Safety Report 10086681 (Version 1)
Quarter: 2014Q2

REPORT INFORMATION
  Report Type: Spontaneous
  Country: US (occurrence: None)
  Receive Date: 20140417
  Receipt Date: 20140417
  Transmission Date: 20141212
  Serious: Yes (Other)
  Sender: FDA-Public Use
  Company Number: None

PATIENT
  Sex: 0

DRUGS (1)
  1. ROCURONIUM [Suspect]
     Indication: NEUROMUSCULAR BLOCKADE
     Dates: start: 20140414, end: 20140415

REACTIONS (1)
  - Drug ineffective [None]
